FAERS Safety Report 16025886 (Version 4)
Quarter: 2021Q2

REPORT INFORMATION
  Report Type: Spontaneous
  Country: PT (occurrence: PT)
  Receive Date: 20190302
  Receipt Date: 20210513
  Transmission Date: 20210716
  Serious: Yes (Hospitalization)
  Sender: FDA-Public Use
  Company Number: PT-AUROBINDO-AUR-APL-2019-011228

PATIENT
  Age: 40 Year
  Sex: Female

DRUGS (9)
  1. MIRTAZAPINE FILM?COATED TABLET [Suspect]
     Active Substance: MIRTAZAPINE
     Indication: TOXICITY TO VARIOUS AGENTS
  2. CLONAZEPAM. [Suspect]
     Active Substance: CLONAZEPAM
     Indication: TOXICITY TO VARIOUS AGENTS
  3. QUETIAPINE. [Suspect]
     Active Substance: QUETIAPINE
     Indication: POISONING
  4. CLONAZEPAM. [Suspect]
     Active Substance: CLONAZEPAM
     Indication: EPILEPSY
     Dosage: UNK
     Route: 065
  5. MIRTAZAPINE FILM?COATED TABLET [Suspect]
     Active Substance: MIRTAZAPINE
     Indication: DEPRESSION
     Dosage: UNK
     Route: 065
  6. QUETIAPINE. [Suspect]
     Active Substance: QUETIAPINE
     Indication: TOXICITY TO VARIOUS AGENTS
  7. QUETIAPINE. [Suspect]
     Active Substance: QUETIAPINE
     Indication: DEPRESSION
     Dosage: UNK
     Route: 065
  8. BUPRENORPHINE. [Suspect]
     Active Substance: BUPRENORPHINE
     Indication: POISONING
     Dosage: UNK
     Route: 065
  9. CLONAZEPAM. [Suspect]
     Active Substance: CLONAZEPAM
     Indication: DEPRESSION

REACTIONS (3)
  - Off label use [Unknown]
  - Toxicity to various agents [Unknown]
  - Radial nerve palsy [Unknown]
